FAERS Safety Report 7603533-X (Version None)
Quarter: 2011Q3

REPORT INFORMATION
  Report Type: 
  Country: None (occurrence: None)
  Receive Date: 20110701
  Receipt Date: 20110620
  Transmission Date: 20111222
  Serious: Yes (Life-Threatening, Hospitalization, Other)
  Sender: FDA-Public Use
  Company Number: AUR-APL-2010-01637

PATIENT
  Age: 59 Year
  Sex: Male

DRUGS (18)
  1. SIMVASTATIN [Suspect]
     Indication: PRODUCT USED FOR UNKNOWN INDICATION
     Dosage: 20 MG (20 MG,1 IN 1 D),ORAL
     Route: 048
  2. ALLOPURINOL [Concomitant]
  3. FUSIDIC ACID [Suspect]
     Indication: ARTHRITIS BACTERIAL
     Dosage: 1500 MG (500 MG,3 IN 1 D)
  4. CALCICHEW (CALCICHEW) [Concomitant]
  5. OROVITE (PARENTROVITE /00041801/) [Concomitant]
  6. GENTAMICIN [Concomitant]
  7. CLOPIDOGREL [Concomitant]
  8. FLOXACILLIN SODIUM [Concomitant]
  9. CLARITHROMYCIN [Concomitant]
  10. ALFACALCIDOL (ALFACALCIDOL) [Concomitant]
  11. CEFTRIAXONE [Concomitant]
  12. DIPYRIDAMOLE [Concomitant]
  13. FOLIC ACID [Concomitant]
  14. GLICLAZIDE (GLICLAZIDE) [Concomitant]
  15. LANSOPRAZOLE [Concomitant]
  16. ATENOLOL [Concomitant]
  17. ERYTHROPOIETIN (ERYTHROPOIETIN) [Concomitant]
  18. IRON SUCROSE (SACCHARATED IRON OXIDE) [Concomitant]

REACTIONS (7)
  - RHABDOMYOLYSIS [None]
  - BLINDNESS [None]
  - PAIN IN EXTREMITY [None]
  - HYPOREFLEXIA [None]
  - RETINOPATHY [None]
  - GLYCOSYLATED HAEMOGLOBIN INCREASED [None]
  - PARAPARESIS [None]
